FAERS Safety Report 25919947 (Version 1)
Quarter: 2025Q4

REPORT INFORMATION
  Report Type: Spontaneous
  Country: US (occurrence: US)
  Receive Date: 20251014
  Receipt Date: 20251014
  Transmission Date: 20260117
  Serious: Yes (Other)
  Sender: ROCHE
  Company Number: US-ROCHE-10000405988

PATIENT
  Sex: Female

DRUGS (1)
  1. XOLAIR [Suspect]
     Active Substance: OMALIZUMAB
     Indication: Product used for unknown indication
     Route: 065

REACTIONS (12)
  - Anaphylactic reaction [Unknown]
  - Anxiety [Unknown]
  - Dizziness [Unknown]
  - Tachycardia [Unknown]
  - Vomiting projectile [Unknown]
  - Pharyngeal swelling [Unknown]
  - Pneumonitis [Unknown]
  - Abdominal discomfort [Unknown]
  - Loss of consciousness [Unknown]
  - Hypotension [Unknown]
  - Oral pruritus [Unknown]
  - Pruritus [Unknown]
